FAERS Safety Report 19505229 (Version 3)
Quarter: 2021Q3

REPORT INFORMATION
  Report Type: Report from Study
  Country: US (occurrence: US)
  Receive Date: 20210708
  Receipt Date: 20210819
  Transmission Date: 20211014
  Serious: Yes (Hospitalization, Other)
  Sender: FDA-Public Use
  Company Number: US-GLAXOSMITHKLINE-US2021131330

PATIENT
  Age: 65 Year
  Sex: Female

DRUGS (2)
  1. NIRAPARIB [Suspect]
     Active Substance: NIRAPARIB
     Dosage: 200 MG, QD
     Route: 048
  2. NIRAPARIB [Suspect]
     Active Substance: NIRAPARIB
     Indication: OVARIAN CANCER
     Dosage: 200 MG, QD
     Route: 048
     Dates: start: 20210614

REACTIONS (15)
  - Aphthous ulcer [Not Recovered/Not Resolved]
  - Drug monitoring procedure not performed [Unknown]
  - Large intestinal obstruction [Unknown]
  - Constipation [Not Recovered/Not Resolved]
  - White coat hypertension [Not Recovered/Not Resolved]
  - Neoplasm [Recovering/Resolving]
  - Hospitalisation [Recovered/Resolved]
  - Weight decreased [Not Recovered/Not Resolved]
  - Red blood cell count decreased [Unknown]
  - Full blood count decreased [Not Recovered/Not Resolved]
  - Tumour haemorrhage [Not Recovered/Not Resolved]
  - Product dose omission issue [Recovered/Resolved]
  - Sleep disorder [Not Recovered/Not Resolved]
  - Gait disturbance [Not Recovered/Not Resolved]
  - Stoma complication [Not Recovered/Not Resolved]

NARRATIVE: CASE EVENT DATE: 202106
